FAERS Safety Report 9901442 (Version 1)
Quarter: 2014Q1

REPORT INFORMATION
  Report Type: Spontaneous
  Country: US (occurrence: US)
  Receive Date: 20140217
  Receipt Date: 20140217
  Transmission Date: 20141002
  Serious: Yes (Other)
  Sender: FDA-Public Use
  Company Number: US-PFIZER INC-2014044135

PATIENT
  Age: 73 Year
  Sex: Female
  Weight: 50.79 kg

DRUGS (1)
  1. NITROSTAT [Suspect]
     Indication: CARDIAC DISORDER
     Dosage: 0.4 MG, UNK
     Route: 048
     Dates: end: 20140213

REACTIONS (2)
  - Myocardial infarction [Unknown]
  - Drug ineffective [Unknown]
